FAERS Safety Report 4383736-0 (Version None)
Quarter: 2004Q2

REPORT INFORMATION
  Report Type: 
  Country: None (occurrence: None)
  Receive Date: 20040608
  Receipt Date: 20030728
  Transmission Date: 20050107
  Serious: Yes (Other)
  Sender: FDA-Public Use
  Company Number: 200312593BCC

PATIENT
  Age: 65 Year
  Sex: Female
  Weight: 63.5036 kg

DRUGS (5)
  1. ALEVE [Suspect]
     Indication: BACK PAIN
     Dosage: 440 MG, ONCE, ORAL
     Route: 048
     Dates: start: 20030726
  2. VITAMIN [Concomitant]
  3. CALCIUM [Concomitant]
  4. VITAMIN E [Concomitant]
  5. GLUCOSAMINE [Concomitant]

REACTIONS (6)
  - ERYTHEMA [None]
  - EYE SWELLING [None]
  - HYPERSENSITIVITY [None]
  - PRURITUS [None]
  - SWOLLEN TONGUE [None]
  - TREMOR [None]
